FAERS Safety Report 7968163-9 (Version None)
Quarter: 2011Q4

REPORT INFORMATION
  Report Type: 
  Country: None (occurrence: None)
  Receive Date: 20111209
  Receipt Date: 20111202
  Transmission Date: 20120403
  Serious: Yes (Hospitalization, Other)
  Sender: FDA-Public Use
  Company Number: PHHY2011CA86447

PATIENT
  Sex: Female

DRUGS (4)
  1. ZOLEDRONOC ACID [Suspect]
     Indication: OSTEOPOROSIS
     Dosage: UNK
     Route: 042
     Dates: start: 20081222
  2. CRESTOR [Concomitant]
  3. ZOLEDRONOC ACID [Suspect]
     Dosage: UNK
     Route: 042
     Dates: start: 20101221
  4. ASPIRIN [Concomitant]

REACTIONS (4)
  - ANEURYSM [None]
  - THROMBOSIS [None]
  - ISCHAEMIA [None]
  - POST PROCEDURAL INFECTION [None]
